FAERS Safety Report 9314946 (Version 1)
Quarter: 2013Q2

REPORT INFORMATION
  Report Type: Spontaneous
  Country: GB (occurrence: GB)
  Receive Date: 20130529
  Receipt Date: 20130529
  Transmission Date: 20140414
  Serious: Yes (Hospitalization, Other)
  Sender: FDA-Public Use
  Company Number: GB-ROXANE LABORATORIES, INC.-2013-RO-00827RO

PATIENT
  Age: 59 Year
  Sex: Male

DRUGS (7)
  1. LITHIUM CARBONATE [Suspect]
     Indication: BIPOLAR DISORDER
  2. QUETIAPINE FUMARATE [Suspect]
     Indication: BIPOLAR DISORDER
  3. DIAZEPAM [Suspect]
     Indication: BIPOLAR DISORDER
  4. FLUPHENAZINE [Suspect]
     Indication: BIPOLAR DISORDER
  5. INSULIN [Suspect]
     Indication: TYPE 2 DIABETES MELLITUS
  6. ARIPIPRAZOLE [Suspect]
     Indication: BIPOLAR DISORDER
  7. SODIUM VALPROATE [Suspect]
     Indication: BIPOLAR DISORDER

REACTIONS (3)
  - Nephrogenic diabetes insipidus [Unknown]
  - Hypernatraemia [Unknown]
  - Osmotic demyelination syndrome [Unknown]
